FAERS Safety Report 7374666-0 (Version None)
Quarter: 2011Q1

REPORT INFORMATION
  Report Type: 
  Country: None (occurrence: None)
  Receive Date: 20110325
  Receipt Date: 20100707
  Transmission Date: 20110831
  Serious: No
  Sender: FDA-Public Use
  Company Number: US-MYLANLABS-2010S1012076

PATIENT
  Age: 68 Year
  Sex: Female
  Weight: 86.18 kg

DRUGS (6)
  1. ATENOLOL [Concomitant]
     Indication: BLOOD PRESSURE
  2. LASIX [Concomitant]
     Route: 048
  3. SYNTHROID [Concomitant]
     Route: 048
  4. POTASSIUM CHLORIDE [Concomitant]
     Route: 048
  5. PERCOCET [Concomitant]
  6. FENTANYL-100 [Suspect]
     Indication: PAIN
     Dosage: CHANGED PATCHES Q3D
     Route: 062
     Dates: start: 20050101, end: 20100703

REACTIONS (6)
  - URTICARIA [None]
  - HEADACHE [None]
  - EYE SWELLING [None]
  - OCULAR HYPERAEMIA [None]
  - DRUG EFFECT INCREASED [None]
  - PRURITUS [None]
